FAERS Safety Report 10152024 (Version 2)
Quarter: 2014Q2

REPORT INFORMATION
  Report Type: Spontaneous
  Country: US (occurrence: US)
  Receive Date: 20140505
  Receipt Date: 20140505
  Transmission Date: 20141212
  Serious: Yes (Other)
  Sender: FDA-Public Use
  Company Number: US-TEVA-447369USA

PATIENT
  Sex: Male

DRUGS (1)
  1. CEFALEXIN [Suspect]

REACTIONS (4)
  - Renal impairment [Unknown]
  - Accidental overdose [Unknown]
  - Vomiting [Unknown]
  - Blood urine present [Unknown]
